FAERS Safety Report 7332683-0 (Version None)
Quarter: 2011Q1

REPORT INFORMATION
  Report Type: 
  Country: None (occurrence: None)
  Receive Date: 20110222
  Receipt Date: 20110204
  Transmission Date: 20110831
  Serious: Yes (Hospitalization)
  Sender: FDA-Public Use
  Company Number: 023696

PATIENT
  Sex: Male
  Weight: 105 kg

DRUGS (17)
  1. NEUPRO [Suspect]
     Indication: PARKINSON'S DISEASE
     Dosage: (2 MG QD TRANSDERMAL), (4 MG QD TRANSDERMAL), (6 MG QD TRANSDERMAL), (8 MG QD TRANSDERMAL), (6 MG QD
     Route: 062
     Dates: start: 20090725, end: 20090827
  2. NEUPRO [Suspect]
     Indication: PARKINSON'S DISEASE
     Dosage: (2 MG QD TRANSDERMAL), (4 MG QD TRANSDERMAL), (6 MG QD TRANSDERMAL), (8 MG QD TRANSDERMAL), (6 MG QD
     Route: 062
     Dates: start: 20090718, end: 20090724
  3. NEUPRO [Suspect]
     Indication: PARKINSON'S DISEASE
     Dosage: (2 MG QD TRANSDERMAL), (4 MG QD TRANSDERMAL), (6 MG QD TRANSDERMAL), (8 MG QD TRANSDERMAL), (6 MG QD
     Route: 062
     Dates: start: 20090711, end: 20090717
  4. NEUPRO [Suspect]
     Indication: PARKINSON'S DISEASE
     Dosage: (2 MG QD TRANSDERMAL), (4 MG QD TRANSDERMAL), (6 MG QD TRANSDERMAL), (8 MG QD TRANSDERMAL), (6 MG QD
     Route: 062
     Dates: start: 20090828, end: 20091027
  5. NEUPRO [Suspect]
     Indication: PARKINSON'S DISEASE
     Dosage: (2 MG QD TRANSDERMAL), (4 MG QD TRANSDERMAL), (6 MG QD TRANSDERMAL), (8 MG QD TRANSDERMAL), (6 MG QD
     Route: 062
     Dates: start: 20091028, end: 20100223
  6. MAGNESIOCARD /00669702/ [Concomitant]
  7. IBUPROFEN [Concomitant]
  8. MADOPAR [Concomitant]
  9. LORATADINE [Concomitant]
  10. PANTOZOL /01263202/ [Concomitant]
  11. AZILECT [Concomitant]
  12. ASPIRIN [Concomitant]
  13. BLOPRESS [Concomitant]
  14. NITRENDIPIN [Concomitant]
  15. MOVICOL /01749801/ [Concomitant]
  16. XIPAMID [Concomitant]
  17. LEVOCARB [Concomitant]

REACTIONS (3)
  - INTERVERTEBRAL DISC PROTRUSION [None]
  - PAIN IN EXTREMITY [None]
  - OEDEMA PERIPHERAL [None]
